FAERS Safety Report 6607803-3 (Version None)
Quarter: 2010Q1

REPORT INFORMATION
  Report Type: 
  Country: None (occurrence: None)
  Receive Date: 20100301
  Receipt Date: 20100223
  Transmission Date: 20100710
  Serious: Yes (Hospitalization, Other)
  Sender: FDA-Public Use
  Company Number: CA-JNJFOC-20090702176

PATIENT
  Sex: Female
  Weight: 45.5 kg

DRUGS (13)
  1. REMICADE [Suspect]
     Indication: CROHN'S DISEASE
     Dosage: IN THE FALL
     Route: 042
  2. REMICADE [Suspect]
     Dosage: SECOND DOSE
     Route: 042
  3. REMICADE [Suspect]
     Dosage: INITIAL DOSE
     Route: 042
  4. REMICADE [Suspect]
     Dosage: THIRD DOSE
     Route: 042
  5. REMICADE [Suspect]
     Route: 042
  6. IMURAN [Concomitant]
  7. PREDNISONE [Concomitant]
  8. ATACAND [Concomitant]
     Route: 048
  9. HYDROCHLOROTHIAZIDE [Concomitant]
     Route: 048
  10. PREMARIN [Concomitant]
     Route: 048
  11. TEGRETOL [Concomitant]
     Indication: CONVULSION
     Route: 048
  12. CALCIUM [Concomitant]
     Route: 048
  13. VITAMIN D [Concomitant]
     Dosage: 1200 UNITS
     Route: 048

REACTIONS (4)
  - BOWEN'S DISEASE [None]
  - CONVULSION [None]
  - CROHN'S DISEASE [None]
  - IRON DEFICIENCY ANAEMIA [None]
